FAERS Safety Report 10801595 (Version 1)
Quarter: 2015Q1

REPORT INFORMATION
  Report Type: Spontaneous
  Country: ES (occurrence: ES)
  Receive Date: 20150217
  Receipt Date: 20150217
  Transmission Date: 20150721
  Serious: Yes (Hospitalization, Other)
  Sender: FDA-Public Use
  Company Number: ES-JNJFOC-20150208075

PATIENT
  Age: 44 Year
  Sex: Male

DRUGS (7)
  1. CANNABIS [Interacting]
     Active Substance: CANNABIS SATIVA SUBSP. INDICA TOP
     Indication: PRODUCT USED FOR UNKNOWN INDICATION
     Route: 065
  2. OLANZAPINE. [Interacting]
     Active Substance: OLANZAPINE
     Indication: SCHIZOPHRENIA, RESIDUAL TYPE
     Route: 065
  3. DIAZEPAM. [Interacting]
     Active Substance: DIAZEPAM
     Indication: SCHIZOPHRENIA, RESIDUAL TYPE
     Route: 065
  4. AMISULPRIDE [Interacting]
     Active Substance: AMISULPRIDE
     Indication: SCHIZOPHRENIA, RESIDUAL TYPE
     Route: 065
  5. TRAMADOL HYDROCHLORIDE. [Suspect]
     Active Substance: TRAMADOL HYDROCHLORIDE
     Indication: PRODUCT USED FOR UNKNOWN INDICATION
     Route: 048
  6. ALCOHOL. [Interacting]
     Active Substance: ALCOHOL
     Indication: PRODUCT USED FOR UNKNOWN INDICATION
     Route: 065
  7. COCAINE [Concomitant]
     Active Substance: COCAINE
     Indication: PRODUCT USED FOR UNKNOWN INDICATION
     Route: 065

REACTIONS (7)
  - Poisoning [Recovered/Resolved]
  - Drug interaction [Recovered/Resolved]
  - Leukoencephalopathy [Recovered/Resolved]
  - Hypoxia [Recovered/Resolved]
  - Drug abuse [Recovered/Resolved]
  - Intentional overdose [Recovered/Resolved]
  - Loss of consciousness [Recovered/Resolved]
